FAERS Safety Report 6987682-5 (Version None)
Quarter: 2010Q3

REPORT INFORMATION
  Report Type: 
  Country: None (occurrence: None)
  Receive Date: 20100916
  Receipt Date: 20100615
  Transmission Date: 20110219
  Serious: No
  Sender: FDA-Public Use
  Company Number: US-ABBOTT-10P-163-0652670-00

PATIENT
  Sex: Female
  Weight: 78.088 kg

DRUGS (17)
  1. TRILIPIX [Suspect]
     Indication: BLOOD TRIGLYCERIDES INCREASED
     Dates: start: 20100401
  2. TRICOR [Suspect]
     Indication: BLOOD TRIGLYCERIDES INCREASED
     Dates: start: 20090101
  3. PREVACID [Concomitant]
     Indication: GASTROOESOPHAGEAL REFLUX DISEASE
  4. SINGULAIR [Concomitant]
     Indication: ASTHMA
  5. DILTIAZEM [Concomitant]
     Indication: HYPERTENSION
  6. METFORMIN [Concomitant]
     Indication: DIABETES MELLITUS
  7. LEVOTHYROXINE [Concomitant]
     Indication: HYPOTHYROIDISM
  8. LASIX [Concomitant]
     Indication: OEDEMA
  9. BENICAR [Concomitant]
     Indication: RENAL DISORDER
  10. BENICAR [Concomitant]
     Indication: PROPHYLAXIS
  11. VESICARE [Concomitant]
     Indication: HYPERTONIC BLADDER
  12. PROVIGIL [Concomitant]
     Indication: NARCOLEPSY
  13. HYDROCODONE [Concomitant]
     Indication: PAIN
  14. NOVOLOG [Concomitant]
     Indication: DIABETES MELLITUS
  15. HUMALOG [Concomitant]
     Indication: DIABETES MELLITUS
  16. RESTARIL [Concomitant]
     Indication: INSOMNIA
  17. OXYGEN [Concomitant]
     Indication: PRODUCT USED FOR UNKNOWN INDICATION

REACTIONS (6)
  - BACK PAIN [None]
  - DYSPNOEA [None]
  - HEADACHE [None]
  - MEDICATION ERROR [None]
  - PAIN [None]
  - PAIN IN EXTREMITY [None]
